FAERS Safety Report 18139024 (Version 1)
Quarter: 2020Q3

REPORT INFORMATION
  Report Type: Spontaneous
  Country: US (occurrence: US)
  Receive Date: 20200812
  Receipt Date: 20200812
  Transmission Date: 20201103
  Serious: No
  Sender: FDA-Public Use
  Company Number: NVSC2020US219535

PATIENT
  Sex: Female

DRUGS (3)
  1. ESTRADIOL. [Suspect]
     Active Substance: ESTRADIOL
     Indication: HOT FLUSH
     Dosage: 0.037 MG, QD, 2 AND HALF WEEKS
     Route: 062
     Dates: start: 20200717
  2. VIVELLE?DOT [Suspect]
     Active Substance: ESTRADIOL
     Dosage: 0.025 MG, 4  MONTHS
     Route: 062
     Dates: start: 202003, end: 202007
  3. VIVELLE?DOT [Suspect]
     Active Substance: ESTRADIOL
     Indication: HOT FLUSH
     Dosage: 0.037 MG, QD
     Route: 062
     Dates: end: 202003

REACTIONS (1)
  - Product adhesion issue [Unknown]

NARRATIVE: CASE EVENT DATE: 20200717
